FAERS Safety Report 25457340 (Version 2)
Quarter: 2025Q2

REPORT INFORMATION
  Report Type: Spontaneous
  Country: DE (occurrence: DE)
  Receive Date: 20250619
  Receipt Date: 20250626
  Transmission Date: 20250716
  Serious: Yes (Death, Hospitalization, Other)
  Sender: ELI LILLY AND COMPANY
  Company Number: DE-BAYER-2025A073412

PATIENT
  Age: 78 Year
  Sex: Male

DRUGS (2)
  1. TADALAFIL [Suspect]
     Active Substance: TADALAFIL
     Indication: Product used for unknown indication
     Route: 065
     Dates: end: 20250528
  2. ADEMPAS [Suspect]
     Active Substance: RIOCIGUAT
     Indication: Pulmonary arterial hypertension
     Route: 065
     Dates: start: 20250522

REACTIONS (9)
  - Death [Fatal]
  - Intra-abdominal fluid collection [Unknown]
  - Coma [Unknown]
  - Sleep disorder [Unknown]
  - Faeces hard [Unknown]
  - Balance disorder [Unknown]
  - Abdominal distension [Unknown]
  - Contraindicated product administered [Unknown]
  - Dyspnoea [Unknown]

NARRATIVE: CASE EVENT DATE: 20250501
